FAERS Safety Report 10166071 (Version 1)
Quarter: 2014Q2

REPORT INFORMATION
  Report Type: Spontaneous
  Country: BR (occurrence: BR)
  Receive Date: 20140512
  Receipt Date: 20140512
  Transmission Date: 20141212
  Serious: Yes (Other)
  Sender: FDA-Public Use
  Company Number: BR-PFIZER INC-2014124720

PATIENT
  Age: 62 Year
  Sex: Male
  Weight: 101.7 kg

DRUGS (5)
  1. XALATAN [Suspect]
     Indication: INTRAOCULAR PRESSURE TEST ABNORMAL
     Dosage: 3 UG (1 DROP IN BOTH EYES)
     Route: 047
     Dates: start: 20040505
  2. XALATAN [Suspect]
     Dosage: 6 UG (2 DROPS IN BOTH EYES) A DAY
     Route: 047
  3. GLIBENCLAMIDE [Concomitant]
     Indication: DIABETES MELLITUS
     Dosage: 2 TABLETS STRENGTH 5 MG A DAY
     Dates: start: 2011
  4. HIDANTAL [Concomitant]
     Indication: CONVULSION
     Dosage: 3 TABLETS A DAY, EVERY 8 HOURS
     Dates: start: 20140320
  5. LOSARTAN [Concomitant]
     Indication: BLOOD PRESSURE ABNORMAL
     Dosage: 2 TABLETS A DAY
     Dates: start: 20140320

REACTIONS (5)
  - Off label use [Not Recovered/Not Resolved]
  - Cerebrovascular accident [Recovering/Resolving]
  - Amnesia [Recovering/Resolving]
  - Intraocular pressure increased [Unknown]
  - Eye pain [Unknown]
